FAERS Safety Report 19310751 (Version 2)
Quarter: 2021Q2

REPORT INFORMATION
  Report Type: Spontaneous
  Country: US (occurrence: US)
  Receive Date: 20210526
  Receipt Date: 20210527
  Transmission Date: 20210717
  Serious: Yes (Other)
  Sender: FDA-Public Use
  Company Number: US-CELGENEUS-USA-20210503030

PATIENT
  Age: 33 Year
  Sex: Male

DRUGS (1)
  1. ZEPOSIA [Suspect]
     Active Substance: OZANIMOD HYDROCHLORIDE
     Indication: MULTIPLE SCLEROSIS
     Dosage: 0.23?0.46 MG
     Route: 048
     Dates: start: 20210507, end: 20210511

REACTIONS (5)
  - Rectal haemorrhage [Unknown]
  - Rash [Unknown]
  - Pruritus [Recovered/Resolved]
  - Heart rate decreased [Unknown]
  - Feeling hot [Recovered/Resolved]

NARRATIVE: CASE EVENT DATE: 20210507
